FAERS Safety Report 19956047 (Version 1)
Quarter: 2021Q4

REPORT INFORMATION
  Report Type: Report from Study
  Country: US (occurrence: US)
  Receive Date: 20211014
  Receipt Date: 20211014
  Transmission Date: 20220303
  Serious: Yes (Hospitalization, Other)
  Sender: FDA-Public Use
  Company Number: 2021A767392

PATIENT
  Age: 1010 Month
  Sex: Male

DRUGS (1)
  1. CALQUENCE [Suspect]
     Active Substance: ACALABRUTINIB
     Indication: Chronic lymphocytic leukaemia
     Route: 048

REACTIONS (8)
  - Hypotension [Unknown]
  - Catatonia [Unknown]
  - Autonomic neuropathy [Unknown]
  - Head discomfort [Unknown]
  - Prostatic disorder [Unknown]
  - Pollakiuria [Unknown]
  - Nocturia [Unknown]
  - Fatigue [Unknown]

NARRATIVE: CASE EVENT DATE: 20210801
